FAERS Safety Report 9497869 (Version 1)
Quarter: 2013Q3

REPORT INFORMATION
  Report Type: Spontaneous
  Country: US (occurrence: US)
  Receive Date: 20130904
  Receipt Date: 20130904
  Transmission Date: 20140515
  Serious: No
  Sender: FDA-Public Use
  Company Number: US-AMGEN-USASP2013060021

PATIENT
  Age: 56 Year
  Sex: Male

DRUGS (1)
  1. ENBREL [Suspect]
     Indication: PSORIASIS
     Dosage: 50 MG, EVERY 8 OR 9 DAYS
     Route: 065
     Dates: start: 20070215

REACTIONS (3)
  - Injection site bruising [Not Recovered/Not Resolved]
  - Extra dose administered [Recovered/Resolved]
  - Psoriasis [Not Recovered/Not Resolved]
